FAERS Safety Report 21747016 (Version 1)
Quarter: 2022Q4

REPORT INFORMATION
  Report Type: Spontaneous
  Country: GB (occurrence: GB)
  Receive Date: 20221219
  Receipt Date: 20221219
  Transmission Date: 20230112
  Serious: Yes (Other)
  Sender: FDA-Public Use
  Company Number: None

PATIENT
  Age: 69 Year
  Sex: Male
  Weight: 115 kg

DRUGS (12)
  1. ATORVASTATIN [Suspect]
     Active Substance: ATORVASTATIN
     Indication: Blood cholesterol increased
     Dosage: AT NIGHT
     Route: 048
     Dates: start: 20220921, end: 20220927
  2. NOVORAPID [Concomitant]
     Active Substance: INSULIN ASPART
     Dosage: 100UNITS/ML. IMMEDIATELY BEFORE MEALS OR WEN NECESSARY SHORTLY AFTER MEALS ACCORDING TO REQUIREMENTS
     Route: 058
  3. TRESIBA [Concomitant]
     Active Substance: INSULIN DEGLUDEC
     Dosage: 200UNITS/ML. ACCORDING TO REQUIREMENTS
     Route: 058
  4. COCODAMOL [Concomitant]
     Active Substance: ACETAMINOPHEN\CODEINE PHOSPHATE
     Dosage: 30/500
  5. PERINDOPRIL ERBUMINE [Concomitant]
     Active Substance: PERINDOPRIL ERBUMINE
  6. BUMETANIDE [Concomitant]
     Active Substance: BUMETANIDE
     Dosage: IN THE MORNING
  7. EZETIMIBE [Concomitant]
     Active Substance: EZETIMIBE
  8. BISOPROLOL [Concomitant]
     Active Substance: BISOPROLOL
     Dosage: 1 IN TE MORNING AND 1 AT 5PM
  9. LORATADINE [Concomitant]
     Active Substance: LORATADINE
  10. WARFARIN [Concomitant]
     Active Substance: WARFARIN
     Dosage: ADJUST DOSAGE ACCORDING TO INSTRUCTION FROM WARFARIN CLINIC
  11. WARFARIN [Concomitant]
     Active Substance: WARFARIN
     Dosage: ADJUST DOSAGE ACCORDING TO INSTRUCTIONS FROM WARFARIN CLINIC
  12. SENNA [Concomitant]
     Active Substance: SENNA LEAF\SENNOSIDES\SENNOSIDES A AND B
     Dosage: ONE OR TWO AT NIGHT

REACTIONS (2)
  - International normalised ratio fluctuation [Recovering/Resolving]
  - Eye haemorrhage [Recovering/Resolving]
